FAERS Safety Report 5794229-8 (Version None)
Quarter: 2008Q2

REPORT INFORMATION
  Report Type: 
  Country: None (occurrence: None)
  Receive Date: 20080627
  Receipt Date: 20080618
  Transmission Date: 20081010
  Serious: Yes (Hospitalization)
  Sender: FDA-Public Use
  Company Number: JP-PFIZER INC-2008051548

PATIENT
  Sex: Male

DRUGS (14)
  1. LIPITOR [Suspect]
     Indication: HYPERLIPIDAEMIA
     Route: 048
     Dates: start: 20050602, end: 20080611
  2. MICARDIS [Suspect]
     Indication: HYPERTENSION
     Route: 048
     Dates: start: 20070313, end: 20080612
  3. OPALMON [Suspect]
     Indication: LUMBAR SPINAL STENOSIS
     Route: 048
     Dates: start: 20060620, end: 20080604
  4. ZANTAC [Suspect]
     Indication: GASTRIC ULCER
     Route: 048
     Dates: start: 20000703, end: 20080611
  5. FLUITRAN [Suspect]
     Indication: HYPERTENSION
     Route: 048
     Dates: start: 20071009, end: 20080606
  6. LIPLE [Suspect]
     Indication: LUMBAR SPINAL STENOSIS
     Dates: start: 20070920, end: 20080401
  7. EUGLUCON [Concomitant]
     Indication: DIABETES MELLITUS
     Route: 048
  8. RENIVACE [Concomitant]
     Indication: HYPERTENSION
     Route: 048
     Dates: start: 20000501
  9. BUFFERIN [Concomitant]
     Indication: CEREBRAL INFARCTION
     Route: 048
     Dates: start: 20000501, end: 20080609
  10. MAGNESIUM OXIDE [Concomitant]
     Indication: LARGE INTESTINE CARCINOMA
     Route: 048
     Dates: start: 20000703
  11. LAC B [Concomitant]
     Indication: LARGE INTESTINE CARCINOMA
     Route: 048
     Dates: start: 20000703
  12. KELNAC [Concomitant]
     Indication: GASTRIC ULCER
     Route: 048
     Dates: start: 20000703
  13. CONIEL [Concomitant]
     Indication: HYPERTENSION
     Route: 048
  14. TENORMIN [Concomitant]
     Indication: HYPERTENSION
     Route: 048
     Dates: start: 20050714

REACTIONS (2)
  - BLOOD IMMUNOGLOBULIN E INCREASED [None]
  - EOSINOPHIL COUNT INCREASED [None]
